FAERS Safety Report 8926336 (Version 3)
Quarter: 2013Q1

REPORT INFORMATION
  Report Type: Spontaneous
  Country: US (occurrence: US)
  Receive Date: 20121126
  Receipt Date: 20130123
  Transmission Date: 20140127
  Serious: Yes (Hospitalization, Disabling, Other)
  Sender: FDA-Public Use
  Company Number: PHEH2012US022874

PATIENT
  Age: 63 Year
  Sex: Female
  Weight: 53.52 kg

DRUGS (32)
  1. GILENYA [Suspect]
     Indication: RELAPSING-REMITTING MULTIPLE SCLEROSIS
     Dosage: 0.5 MG, QD
     Route: 048
     Dates: start: 20120403
  2. ADVAIR [Concomitant]
  3. SPIRIVA [Concomitant]
  4. PROAIR (FLUTICASONE PROPIONATE) [Concomitant]
  5. TRIAMCINOLONE [Concomitant]
  6. ALENDRONATE [Concomitant]
  7. BISOPROLOL [Concomitant]
  8. MELATONIN [Concomitant]
  9. LISINOPRIL [Concomitant]
  10. SYNTHROID [Concomitant]
  11. CITALOPRAM [Concomitant]
  12. ZOCOR [Concomitant]
  13. METFORMIN [Concomitant]
  14. XANAX [Concomitant]
  15. BENADRYL [Concomitant]
     Dosage: UNK UKN, PRN
  16. IRON [Concomitant]
  17. RITALIN [Concomitant]
  18. RESTORIL [Concomitant]
  19. CALTRATE                           /00944201/ [Concomitant]
  20. ALBUTEROL [Concomitant]
     Dosage: UNK UKN, PRN
  21. ZEBETA [Concomitant]
  22. ASA [Concomitant]
  23. NEURONTIN [Concomitant]
  24. SOMA [Concomitant]
  25. VICOPROFEN [Concomitant]
  26. NITROGLYCERIN [Concomitant]
     Dosage: UNK UKN, PRN
  27. VITAMIN B12 [Concomitant]
  28. PEPCID [Concomitant]
  29. PHENERGAN [Concomitant]
     Dosage: UNK UKN, PRN
  30. PLAVIX [Concomitant]
  31. IBUPROFEN [Concomitant]
     Dosage: UNK UKN, PRN
  32. HYDROCHLOROTHIAZIDE [Concomitant]

REACTIONS (6)
  - Pneumonia [Recovered/Resolved]
  - Pain in extremity [Recovering/Resolving]
  - Fall [Recovered/Resolved]
  - Haemorrhage [Unknown]
  - Hip fracture [Recovered/Resolved]
  - Full blood count decreased [Unknown]
